FAERS Safety Report 6663059-7 (Version None)
Quarter: 2010Q1

REPORT INFORMATION
  Report Type: 
  Country: None (occurrence: None)
  Receive Date: 20100329
  Receipt Date: 20090327
  Transmission Date: 20100710
  Serious: Yes (Other)
  Sender: FDA-Public Use
  Company Number: 2009EN000122

PATIENT
  Age: 5 Year
  Sex: Male

DRUGS (1)
  1. ONCASPAR [Suspect]
     Indication: ACUTE LYMPHOCYTIC LEUKAEMIA
     Dosage: ;IV
     Route: 042
     Dates: start: 20081205, end: 20081216

REACTIONS (4)
  - ANAPHYLACTIC REACTION [None]
  - EXOPHTHALMOS [None]
  - FLUSHING [None]
  - SCREAMING [None]
